FAERS Safety Report 23944737 (Version 1)
Quarter: 2024Q2

REPORT INFORMATION
  Report Type: Spontaneous
  Country: GB (occurrence: GB)
  Receive Date: 20240606
  Receipt Date: 20240606
  Transmission Date: 20240716
  Serious: Yes (Other)
  Sender: FDA-Public Use
  Company Number: GB-MHRA-TPP26728137C22275880YC1717071174939

PATIENT
  Age: 41 Year
  Sex: Female
  Weight: 57 kg

DRUGS (3)
  1. DOXYCYCLINE [Suspect]
     Active Substance: DOXYCYCLINE\DOXYCYCLINE HYCLATE
     Indication: Ill-defined disorder
     Dosage: 100MG CAPSULES
     Route: 048
     Dates: start: 20240524, end: 20240530
  2. AMOXICILLIN [Concomitant]
     Active Substance: AMOXICILLIN
     Indication: Ill-defined disorder
     Dosage: ONE TO BE TAKEN 8 HOURSFOR 5 DAYS
     Dates: start: 20240530
  3. DOXYCYCLINE [Concomitant]
     Active Substance: DOXYCYCLINE\DOXYCYCLINE HYCLATE
     Indication: Ill-defined disorder
     Dosage: TWO NOW THEN ONE DAILY
     Route: 065
     Dates: start: 20240524

REACTIONS (1)
  - Tinnitus [Recovering/Resolving]

NARRATIVE: CASE EVENT DATE: 20240524
